FAERS Safety Report 20712652 (Version 5)
Quarter: 2022Q2

REPORT INFORMATION
  Report Type: Spontaneous
  Country: US (occurrence: None)
  Receive Date: 20220415
  Receipt Date: 20220620
  Transmission Date: 20220720
  Serious: Yes (Hospitalization)
  Sender: FDA-Public Use
  Company Number: US-Ultragenyx Pharmaceutical Inc.-US-UGNX-22-00205

PATIENT
  Age: 7 Year
  Sex: Male
  Weight: 33.79 kg

DRUGS (13)
  1. DOJOLVI [Suspect]
     Active Substance: TRIHEPTANOIN
     Indication: Very long-chain acyl-coenzyme A dehydrogenase deficiency
     Route: 048
     Dates: start: 20210723
  2. DOJOLVI [Suspect]
     Active Substance: TRIHEPTANOIN
     Route: 048
     Dates: start: 20220306
  3. DOJOLVI [Suspect]
     Active Substance: TRIHEPTANOIN
     Route: 048
     Dates: start: 20220307
  4. DOJOLVI [Suspect]
     Active Substance: TRIHEPTANOIN
     Route: 048
     Dates: start: 20220327
  5. DOJOLVI [Suspect]
     Active Substance: TRIHEPTANOIN
     Route: 048
     Dates: start: 20220401
  6. RISPERIDONE [Concomitant]
     Active Substance: RISPERIDONE
     Indication: Autism spectrum disorder
  7. DIAZEPAM [Concomitant]
     Active Substance: DIAZEPAM
     Indication: Seizure
  8. LEVOCARNITINE [Concomitant]
     Active Substance: LEVOCARNITINE
     Indication: Very long-chain acyl-coenzyme A dehydrogenase deficiency
     Dosage: 1 G/10 ML SOLN
  9. ZARBEE^S CHILDREN^S COMPLETE MULTI-IMMUNE WITH VITAMIN B-COMPLX GUMMY [Concomitant]
     Indication: Very long-chain acyl-coenzyme A dehydrogenase deficiency
     Dosage: 2 GUMMIES PER DAY
  10. MCT PRO-CAL PACKET [Concomitant]
     Indication: Very long-chain acyl-coenzyme A dehydrogenase deficiency
  11. MELATONIN [Concomitant]
     Active Substance: MELATONIN
     Indication: Autism spectrum disorder
  12. NATURE^S WAY ELDERBERRY GUMMIES [Concomitant]
     Indication: Very long-chain acyl-coenzyme A dehydrogenase deficiency
  13. KEPPRA [Concomitant]
     Active Substance: LEVETIRACETAM
     Indication: Seizure

REACTIONS (4)
  - Rhabdomyolysis [Recovered/Resolved]
  - Lethargy [Recovered/Resolved]
  - Vomiting [Unknown]
  - Intentional product misuse [Unknown]

NARRATIVE: CASE EVENT DATE: 20220327
